FAERS Safety Report 13076527 (Version 1)
Quarter: 2016Q4

REPORT INFORMATION
  Report Type: Spontaneous
  Country: CA (occurrence: CA)
  Receive Date: 20161230
  Receipt Date: 20161230
  Transmission Date: 20170207
  Serious: Yes (Other)
  Sender: FDA-Public Use
  Company Number: PHHY2016CA177808

PATIENT
  Age: 56 Year
  Sex: Female

DRUGS (1)
  1. EXTAVIA [Suspect]
     Active Substance: INTERFERON BETA-1B
     Indication: PRODUCT USED FOR UNKNOWN INDICATION
     Dosage: UNK UNK, QOD
     Route: 058
     Dates: start: 201101

REACTIONS (13)
  - Ataxia [Unknown]
  - Hypertonia [Unknown]
  - White matter lesion [Unknown]
  - Optic neuropathy [Unknown]
  - Balance disorder [Unknown]
  - Abasia [Unknown]
  - Central nervous system lesion [Unknown]
  - Hyperreflexia [Unknown]
  - Multiple sclerosis [Unknown]
  - Hypoaesthesia [Unknown]
  - Arthralgia [Recovered/Resolved]
  - Myelitis [Unknown]
  - Muscular weakness [Unknown]

NARRATIVE: CASE EVENT DATE: 201102
